FAERS Safety Report 8353502-X (Version None)
Quarter: 2012Q2

REPORT INFORMATION
  Report Type: 
  Country: None (occurrence: None)
  Receive Date: 20120511
  Receipt Date: 20110429
  Transmission Date: 20120825
  Serious: No
  Sender: FDA-Public Use
  Company Number: US-GLAXOSMITHKLINE-A0925092A

PATIENT
  Age: 75 Year
  Sex: Female
  Weight: 42.7 kg

DRUGS (2)
  1. TYKERB [Suspect]
     Indication: BREAST CANCER
     Dosage: 4TAB PER DAY
     Route: 048
     Dates: start: 20110422
  2. CHEMOTHERAPY [Suspect]
     Indication: PRODUCT USED FOR UNKNOWN INDICATION
     Route: 065
     Dates: start: 20110408

REACTIONS (8)
  - DIARRHOEA [None]
  - FATIGUE [None]
  - PAIN [None]
  - FUNGAL INFECTION [None]
  - NAUSEA [None]
  - VOMITING [None]
  - MALAISE [None]
  - CONSTIPATION [None]
